FAERS Safety Report 7041940-7 (Version None)
Quarter: 2010Q4

REPORT INFORMATION
  Report Type: 
  Country: None (occurrence: None)
  Receive Date: 20101013
  Receipt Date: 20100426
  Transmission Date: 20110411
  Serious: No
  Sender: FDA-Public Use
  Company Number: US-ASTRAZENECA-2010SE18616

PATIENT
  Sex: Female
  Weight: 70.3 kg

DRUGS (2)
  1. SYMBICORT [Suspect]
     Dosage: 80/4.5, TWO PUFFS
     Route: 055
  2. AUGMENTIN '125' [Concomitant]

REACTIONS (3)
  - CHEST PAIN [None]
  - INSOMNIA [None]
  - TACHYCARDIA [None]
